FAERS Safety Report 17883312 (Version 4)
Quarter: 2020Q3

REPORT INFORMATION
  Report Type: Report from Study
  Country: US (occurrence: US)
  Receive Date: 20200611
  Receipt Date: 20200708
  Transmission Date: 20201103
  Serious: No
  Sender: FDA-Public Use
  Company Number: NVSC2020US162610

PATIENT
  Age: 57 Year
  Sex: Male

DRUGS (1)
  1. ENTRESTO [Suspect]
     Active Substance: SACUBITRIL\VALSARTAN
     Indication: PRODUCT USED FOR UNKNOWN INDICATION
     Dosage: 100 MG (49.51), BID
     Route: 048
     Dates: start: 2018

REACTIONS (7)
  - Fall [Unknown]
  - Rhinorrhoea [Unknown]
  - Depression [Unknown]
  - Lacrimation increased [Unknown]
  - Back pain [Unknown]
  - Eye swelling [Unknown]
  - Anxiety [Unknown]

NARRATIVE: CASE EVENT DATE: 20200606
